FAERS Safety Report 24978356 (Version 1)
Quarter: 2025Q1

REPORT INFORMATION
  Report Type: Spontaneous
  Country: PL (occurrence: PL)
  Receive Date: 20250217
  Receipt Date: 20250217
  Transmission Date: 20250408
  Serious: Yes (Death)
  Sender: AMGEN
  Company Number: PL-AMGEN-POLSP2024257985

PATIENT
  Age: 50 Year
  Sex: Female
  Weight: 58 kg

DRUGS (3)
  1. PROLIA [Suspect]
     Active Substance: DENOSUMAB
     Indication: Plasma cell myeloma
     Route: 065
     Dates: start: 20240507, end: 20240507
  2. DARZALEX [Suspect]
     Active Substance: DARATUMUMAB
     Indication: Plasma cell myeloma
     Route: 058
     Dates: start: 20240326, end: 20240703
  3. VELCADE [Suspect]
     Active Substance: BORTEZOMIB
     Indication: Plasma cell myeloma
     Dosage: 2 MILLIGRAM, TID   (DOSING ACCORDING TO DVTD REGIMEN)
     Route: 040
     Dates: start: 20240326, end: 20240703

REACTIONS (5)
  - Diverticular perforation [Fatal]
  - Acute respiratory distress syndrome [Fatal]
  - Pneumonia [Fatal]
  - Thrombocytopenia [Fatal]
  - Abdominal abscess [Fatal]

NARRATIVE: CASE EVENT DATE: 20240705
